FAERS Safety Report 12666934 (Version 4)
Quarter: 2017Q1

REPORT INFORMATION
  Report Type: Report from Study
  Country: US (occurrence: US)
  Receive Date: 20160819
  Receipt Date: 20170322
  Transmission Date: 20170428
  Serious: No
  Sender: FDA-Public Use
  Company Number: PHEH2016US020503

PATIENT
  Sex: Female

DRUGS (3)
  1. COSENTYX [Suspect]
     Active Substance: SECUKINUMAB
     Indication: PRODUCT USED FOR UNKNOWN INDICATION
     Dosage: 150 MG, QW
     Route: 065
     Dates: start: 201607
  2. COSENTYX [Suspect]
     Active Substance: SECUKINUMAB
     Dosage: 300 MG, QMO
     Route: 065
     Dates: start: 20170303
  3. COSENTYX [Suspect]
     Active Substance: SECUKINUMAB
     Dosage: 300 MG, QMO
     Route: 065
     Dates: start: 201701

REACTIONS (13)
  - Inflammation [Unknown]
  - Cystitis [Unknown]
  - Drug ineffective [Unknown]
  - Pain in extremity [Unknown]
  - Pain [Recovering/Resolving]
  - Psoriatic arthropathy [Unknown]
  - Hypoaesthesia [Unknown]
  - Back pain [Unknown]
  - Neck pain [Unknown]
  - Paraesthesia [Unknown]
  - Psoriasis [Unknown]
  - Feeling abnormal [Unknown]
  - Peripheral swelling [Unknown]
